FAERS Safety Report 21355114 (Version 3)
Quarter: 2025Q3

REPORT INFORMATION
  Report Type: Spontaneous
  Country: GB (occurrence: GB)
  Receive Date: 20220920
  Receipt Date: 20250903
  Transmission Date: 20251021
  Serious: Yes (Hospitalization, Other)
  Sender: MYLAN
  Company Number: GB-MYLANLABS-2022M1093981

PATIENT
  Age: 22 Year
  Sex: Male

DRUGS (12)
  1. CLOZARIL [Suspect]
     Active Substance: CLOZAPINE
     Indication: Schizophrenia
     Dates: start: 20181106, end: 20220914
  2. CLOZARIL [Suspect]
     Active Substance: CLOZAPINE
     Dates: start: 20181106, end: 20220914
  3. CLOZARIL [Suspect]
     Active Substance: CLOZAPINE
     Route: 048
     Dates: start: 20181106, end: 20220914
  4. CLOZARIL [Suspect]
     Active Substance: CLOZAPINE
     Route: 048
     Dates: start: 20181106, end: 20220914
  5. CLOZARIL [Suspect]
     Active Substance: CLOZAPINE
  6. CLOZARIL [Suspect]
     Active Substance: CLOZAPINE
  7. CLOZARIL [Suspect]
     Active Substance: CLOZAPINE
     Route: 065
  8. CLOZARIL [Suspect]
     Active Substance: CLOZAPINE
     Route: 065
  9. CLOZARIL [Suspect]
     Active Substance: CLOZAPINE
  10. CLOZARIL [Suspect]
     Active Substance: CLOZAPINE
     Route: 048
  11. CLOZARIL [Suspect]
     Active Substance: CLOZAPINE
  12. CLOZARIL [Suspect]
     Active Substance: CLOZAPINE
     Route: 048

REACTIONS (4)
  - Hospitalisation [Unknown]
  - Neutropenia [Recovered/Resolved]
  - Differential white blood cell count abnormal [Recovering/Resolving]
  - Off label use [Unknown]

NARRATIVE: CASE EVENT DATE: 20220914
